FAERS Safety Report 11498779 (Version 1)
Quarter: 2015Q3

REPORT INFORMATION
  Report Type: Spontaneous
  Country: US (occurrence: US)
  Receive Date: 20150912
  Receipt Date: 20150912
  Transmission Date: 20151125
  Serious: No
  Sender: FDA-Public Use
  Company Number: US-GLENMARK PHARMACEUTICALS INC, USA.-2014GMK010683

PATIENT
  Sex: Female

DRUGS (10)
  1. PREVACID [Concomitant]
     Active Substance: LANSOPRAZOLE
     Dosage: 25 MG, QD
  2. PAROXETINE [Concomitant]
     Active Substance: PAROXETINE\PAROXETINE HYDROCHLORIDE
     Dosage: 20 MG, QD
  3. VITAMIN D3 [Concomitant]
     Active Substance: CHOLECALCIFEROL
     Dosage: 2000 IU, QD
  4. FISH OIL [Concomitant]
     Active Substance: FISH OIL
     Dosage: 1 DF, QD
  5. ZYRTEC [Concomitant]
     Active Substance: CETIRIZINE HYDROCHLORIDE
     Dosage: 1 DF, QD
  6. SEASONIQUE [Concomitant]
     Active Substance: ETHINYL ESTRADIOL\LEVONORGESTREL
     Dosage: 1 DF, QD
  7. MVI                                /07504101/ [Concomitant]
     Dosage: 1 DF, QD
     Route: 042
  8. CALCIUM [Concomitant]
     Active Substance: CALCIUM
     Dosage: 600 MG TO 1200 MG, QD
  9. NORETHINDRONE ACETATE TABLETS [Suspect]
     Active Substance: NORETHINDRONE ACETATE
     Dosage: UNK
     Route: 048
     Dates: start: 2005, end: 2005
  10. LUPRON DEPOT [Suspect]
     Active Substance: LEUPROLIDE ACETATE
     Dosage: 11.25 MG, EVERY THREE MONTHS
     Dates: start: 2005, end: 2005

REACTIONS (1)
  - Drug ineffective [Recovering/Resolving]

NARRATIVE: CASE EVENT DATE: 2005
